FAERS Safety Report 4951707-9 (Version None)
Quarter: 2006Q1

REPORT INFORMATION
  Report Type: 
  Country: None (occurrence: None)
  Receive Date: 20060323
  Receipt Date: 20051114
  Transmission Date: 20060701
  Serious: Yes (Hospitalization)
  Sender: FDA-Public Use
  Company Number: US-GLAXOSMITHKLINE-A0582936A

PATIENT
  Sex: Female
  Weight: 68.2 kg

DRUGS (17)
  1. PAXIL [Suspect]
     Indication: DEPRESSION
     Route: 048
  2. PAXIL [Suspect]
     Route: 048
  3. PAROXETINE HCL [Suspect]
     Indication: DEPRESSION
     Route: 048
  4. FLEXERIL [Concomitant]
     Dates: end: 20050101
  5. ATENOLOL [Concomitant]
     Dosage: 25MG PER DAY
  6. PREMPRO [Concomitant]
  7. LISINOPRIL [Concomitant]
  8. ZOCOR [Concomitant]
  9. LEXAPRO [Concomitant]
  10. PROMETRIUM [Concomitant]
  11. HYDROCHLOROTHIAZIDE [Concomitant]
  12. AVAPRO [Concomitant]
  13. PROVERA [Concomitant]
  14. WELLBUTRIN [Concomitant]
     Dosage: 150MG PER DAY
     Route: 048
  15. XANAX [Concomitant]
  16. REMERON [Concomitant]
  17. CELEXA [Concomitant]

REACTIONS (30)
  - ABDOMINAL PAIN UPPER [None]
  - AGORAPHOBIA [None]
  - ANXIETY [None]
  - CHILLS [None]
  - CONFUSIONAL STATE [None]
  - DECREASED APPETITE [None]
  - DEPERSONALISATION [None]
  - DIARRHOEA [None]
  - DISTURBANCE IN ATTENTION [None]
  - DRUG INEFFECTIVE [None]
  - DRUG WITHDRAWAL SYNDROME [None]
  - FEAR [None]
  - GAIT DISTURBANCE [None]
  - HOT FLUSH [None]
  - IRRITABILITY [None]
  - LEUKOPENIA [None]
  - LIBIDO DECREASED [None]
  - MEMORY IMPAIRMENT [None]
  - MOOD SWINGS [None]
  - NAUSEA [None]
  - NEUTROPENIA [None]
  - PANIC REACTION [None]
  - PARAESTHESIA [None]
  - RASH [None]
  - SOMNOLENCE [None]
  - SUICIDAL IDEATION [None]
  - TEARFULNESS [None]
  - TINNITUS [None]
  - TREMOR [None]
  - VISION BLURRED [None]
